FAERS Safety Report 17647045 (Version 3)
Quarter: 2020Q2

REPORT INFORMATION
  Report Type: Spontaneous
  Country: US (occurrence: US)
  Receive Date: 20200408
  Receipt Date: 20200416
  Transmission Date: 20200713
  Serious: No
  Sender: FDA-Public Use
  Company Number: US-JNJFOC-20200400332

PATIENT
  Age: 26 Year
  Sex: Male
  Weight: 77.18 kg

DRUGS (2)
  1. TREMFYA [Suspect]
     Active Substance: GUSELKUMAB
  2. TREMFYA [Suspect]
     Active Substance: GUSELKUMAB
     Indication: PSORIASIS
     Route: 058
     Dates: start: 20190723

REACTIONS (2)
  - Product dose omission [Unknown]
  - Product storage error [Unknown]

NARRATIVE: CASE EVENT DATE: 20200326
